FAERS Safety Report 4451785-X (Version None)
Quarter: 2004Q3

REPORT INFORMATION
  Report Type: 
  Country: None (occurrence: None)
  Receive Date: 20040813
  Receipt Date: 20040526
  Transmission Date: 20050211
  Serious: Yes (Hospitalization)
  Sender: FDA-Public Use
  Company Number: S04-USA-03035-01

PATIENT
  Age: 85 Year
  Sex: Male

DRUGS (1)
  1. NAMENDA [Suspect]

REACTIONS (1)
  - CARDIAC FAILURE CONGESTIVE [None]
